FAERS Safety Report 7035119-2 (Version None)
Quarter: 2010Q4

REPORT INFORMATION
  Report Type: 
  Country: None (occurrence: None)
  Receive Date: 20101008
  Receipt Date: 20100923
  Transmission Date: 20110411
  Serious: Yes (Death, Hospitalization, Other)
  Sender: FDA-Public Use
  Company Number: PHEH2006US05879

PATIENT
  Sex: Male
  Weight: 80.726 kg

DRUGS (54)
  1. ZOMETA [Suspect]
     Dosage: 4 MG, QMO
  2. AREDIA [Suspect]
     Indication: METASTASES TO BONE
  3. AREDIA [Suspect]
     Indication: MULTIPLE MYELOMA
  4. CHEMOTHERAPEUTICS NOS [Concomitant]
  5. TYLENOL [Concomitant]
  6. ASPIRIN [Concomitant]
  7. CHLORHEXIDINE GLUCONATE [Concomitant]
  8. NYSTATIN [Concomitant]
  9. OXYCODONE [Concomitant]
  10. PROTONIX [Concomitant]
  11. AUGMENTIN '125' [Concomitant]
  12. METRONIDAZOLE [Concomitant]
  13. TEMAZEPAM [Concomitant]
  14. METOPROLOL TARTRATE [Concomitant]
  15. COMPAZINE [Concomitant]
  16. REMERON [Concomitant]
  17. ATIVAN [Concomitant]
  18. MILK OF MAGNESIA TAB [Concomitant]
  19. BISACODYL [Concomitant]
  20. AMBIEN [Concomitant]
  21. VELCADE [Concomitant]
  22. DOXIL [Concomitant]
  23. REVLIMID [Concomitant]
  24. DECADRON [Concomitant]
  25. THALIDOMIDE [Concomitant]
  26. HYDROCODONE [Concomitant]
  27. CYCLOBENZAPRINE [Concomitant]
  28. CITALOPRAM HYDROBROMIDE [Concomitant]
  29. DEXAMETHASONE [Concomitant]
  30. METHYLIN [Concomitant]
  31. FLAGYL [Concomitant]
  32. DOCUSATE [Concomitant]
  33. VICODIN [Concomitant]
  34. LEVAQUIN [Concomitant]
  35. IBUPROFEN [Concomitant]
  36. WELLBUTRIN [Concomitant]
  37. CIMETIDINE [Concomitant]
  38. ATENOLOL [Concomitant]
  39. CALCIUM CARBONATE [Concomitant]
  40. MECLIZINE [Concomitant]
  41. PSYLLIUM [Concomitant]
  42. TYLENOL W/ CODEINE NO. 2 [Concomitant]
  43. BACTRIM [Concomitant]
  44. SKELAXIN [Concomitant]
  45. CELEBREX [Concomitant]
  46. REVLIMID [Concomitant]
  47. OXYCONTIN [Concomitant]
  48. VANCOMYCIN [Concomitant]
  49. ZOSYN [Concomitant]
  50. SIMETHICONE [Concomitant]
  51. LACTULOSE [Concomitant]
  52. TEMAZEPAM [Concomitant]
  53. PROCHLORPERAZINE [Concomitant]
  54. SENNA [Concomitant]

REACTIONS (76)
  - ACUTE MYOCARDIAL INFARCTION [None]
  - ANAEMIA [None]
  - ANXIETY [None]
  - ARTHRALGIA [None]
  - ASTHENIA [None]
  - ATELECTASIS [None]
  - BACK PAIN [None]
  - BONE DISORDER [None]
  - BRONCHITIS [None]
  - CEREBRAL HAEMORRHAGE [None]
  - CORONARY ARTERY DISEASE [None]
  - COUGH [None]
  - DEATH [None]
  - DEBRIDEMENT [None]
  - DECREASED INTEREST [None]
  - DENTAL OPERATION [None]
  - DENTOFACIAL ANOMALY [None]
  - DIPLEGIA [None]
  - DYSPEPSIA [None]
  - DYSPHAGIA [None]
  - DYSPNOEA [None]
  - EJECTION FRACTION DECREASED [None]
  - EMOTIONAL DISTRESS [None]
  - ENDODONTIC PROCEDURE [None]
  - ERECTILE DYSFUNCTION [None]
  - EXOSTOSIS [None]
  - FAILURE TO THRIVE [None]
  - FALL [None]
  - FATIGUE [None]
  - GASTROOESOPHAGEAL REFLUX DISEASE [None]
  - GENERAL PHYSICAL HEALTH DETERIORATION [None]
  - GINGIVITIS [None]
  - HEAD INJURY [None]
  - HYPERCALCAEMIA OF MALIGNANCY [None]
  - HYPERGLYCAEMIA [None]
  - HYPERHIDROSIS [None]
  - HYPERTENSION [None]
  - HYPOALBUMINAEMIA [None]
  - HYPOTENSION [None]
  - IMPAIRED HEALING [None]
  - INFECTION [None]
  - INTERVERTEBRAL DISC PROTRUSION [None]
  - LEFT VENTRICULAR DYSFUNCTION [None]
  - LIFE EXPECTANCY SHORTENED [None]
  - MECHANICAL VENTILATION [None]
  - MENTAL STATUS CHANGES [None]
  - MUSCLE ATROPHY [None]
  - MYALGIA [None]
  - MYELOPATHY [None]
  - NAUSEA [None]
  - NEUROGENIC BLADDER [None]
  - NEUROPATHY PERIPHERAL [None]
  - NOCTURIA [None]
  - OESOPHAGEAL STENOSIS [None]
  - ORAL CANDIDIASIS [None]
  - OROPHARYNGEAL PAIN [None]
  - OSTEOMYELITIS [None]
  - OSTEONECROSIS OF JAW [None]
  - PAIN [None]
  - PANCYTOPENIA [None]
  - PATHOLOGICAL FRACTURE [None]
  - PLASMACYTOMA [None]
  - PLEURAL EFFUSION [None]
  - PLEURAL NEOPLASM [None]
  - PNEUMONIA ASPIRATION [None]
  - PYREXIA [None]
  - RESPIRATORY FAILURE [None]
  - SEPSIS [None]
  - SEQUESTRECTOMY [None]
  - SPINAL CORD COMPRESSION [None]
  - TACHYCARDIA [None]
  - THROMBOCYTOPENIA [None]
  - TOOTH EXTRACTION [None]
  - TOOTH FRACTURE [None]
  - VOMITING [None]
  - WEIGHT DECREASED [None]
